APPROVED DRUG PRODUCT: ROFLUMILAST
Active Ingredient: ROFLUMILAST
Strength: 500MCG
Dosage Form/Route: TABLET;ORAL
Application: A208236 | Product #001
Applicant: SENORES PHARMACEUTICALS INC
Approved: Oct 3, 2018 | RLD: No | RS: No | Type: DISCN